FAERS Safety Report 9119824 (Version 1)
Quarter: 2013Q1

REPORT INFORMATION
  Report Type: Spontaneous
  Country: SE (occurrence: None)
  Receive Date: 20130130
  Receipt Date: 20130130
  Transmission Date: 20140127
  Serious: Yes (Other)
  Sender: FDA-Public Use
  Company Number: 2013-01150

PATIENT
  Age: 71 Year
  Sex: Male

DRUGS (4)
  1. CITALOPRAM HYDROBROMIDE [Suspect]
     Indication: PRODUCT USED FOR UNKNOWN INDICATION
  2. METFORMIN HYDROCHLORIDE [Suspect]
  3. KALEORID [Suspect]
  4. METOLAZONE [Suspect]

REACTIONS (4)
  - Fatigue [None]
  - Dehydration [None]
  - Nausea [None]
  - Apathy [None]
